FAERS Safety Report 18462521 (Version 1)
Quarter: 2020Q4

REPORT INFORMATION
  Report Type: Spontaneous
  Country: CN (occurrence: CN)
  Receive Date: 20201104
  Receipt Date: 20201104
  Transmission Date: 20210114
  Serious: Yes (Life-Threatening, Other)
  Sender: FDA-Public Use
  Company Number: CN-GLAXOSMITHKLINE-CN2020218475

PATIENT
  Age: 77 Year
  Sex: Female

DRUGS (2)
  1. VOTALIN [Suspect]
     Active Substance: DICLOFENAC SODIUM
     Indication: PERIODONTITIS
     Dosage: 75 MG, QD
     Route: 048
     Dates: start: 20201016, end: 20201016
  2. CEFALEXIN [Suspect]
     Active Substance: CEPHALEXIN
     Indication: TOOTHACHE
     Dosage: 0.25 G, TID
     Route: 048
     Dates: start: 20201016, end: 20201016

REACTIONS (1)
  - Anaphylactic shock [Recovering/Resolving]

NARRATIVE: CASE EVENT DATE: 20201016
